FAERS Safety Report 16648929 (Version 1)
Quarter: 2019Q3

REPORT INFORMATION
  Report Type: Spontaneous
  Country: CA (occurrence: CA)
  Receive Date: 20190730
  Receipt Date: 20190730
  Transmission Date: 20191004
  Serious: Yes (Hospitalization, Other)
  Sender: FDA-Public Use
  Company Number: CA-JUBILANT CADISTA PHARMACEUTICALS-2019JUB00291

PATIENT
  Age: 54 Year
  Sex: Female

DRUGS (3)
  1. PREDNISONE. [Suspect]
     Active Substance: PREDNISONE
     Indication: ANTI-GLOMERULAR BASEMENT MEMBRANE DISEASE
     Route: 065
  2. CYCLOPHOSPHAMIDE. [Suspect]
     Active Substance: CYCLOPHOSPHAMIDE
     Indication: ANTI-GLOMERULAR BASEMENT MEMBRANE DISEASE
     Route: 065
  3. RITUXIMAB. [Suspect]
     Active Substance: RITUXIMAB
     Indication: ANTI-GLOMERULAR BASEMENT MEMBRANE DISEASE
     Route: 065

REACTIONS (9)
  - Brain abscess [Recovering/Resolving]
  - Thrombotic microangiopathy [Unknown]
  - Aspergillus infection [Recovering/Resolving]
  - Liver abscess [Unknown]
  - Microangiopathic haemolytic anaemia [Unknown]
  - Pulmonary cavitation [Unknown]
  - Generalised tonic-clonic seizure [Recovered/Resolved]
  - Thrombocytopenia [Recovered/Resolved]
  - Delirium [Recovered/Resolved]
